FAERS Safety Report 10949468 (Version 1)
Quarter: 2015Q1

REPORT INFORMATION
  Report Type: Report from Study
  Country: ES (occurrence: ES)
  Receive Date: 20150324
  Receipt Date: 20150324
  Transmission Date: 20150721
  Serious: Yes (Hospitalization)
  Sender: FDA-Public Use
  Company Number: ES-PFIZER INC-2015101754

PATIENT
  Age: 87 Year
  Sex: Male

DRUGS (10)
  1. ADIRO [Concomitant]
     Active Substance: ASPIRIN
     Dosage: 1 DF, 1X/DAY
  2. DUODART [Concomitant]
     Active Substance: DUTASTERIDE\TAMSULOSIN
     Dosage: 1 DF, 1X/DAY
  3. ENALAPRIL [Concomitant]
     Active Substance: ENALAPRIL
     Dosage: 2.5 MG, 2X/DAY
  4. ALDACTONE [Suspect]
     Active Substance: SPIRONOLACTONE
     Indication: CARDIAC FAILURE
     Dosage: 25 MG, 1X/DAY
     Route: 048
     Dates: start: 20130812, end: 20141210
  5. CORLENTOR [Concomitant]
     Active Substance: IVABRADINE HYDROCHLORIDE
     Dosage: 7.5 MG, 2X/DAY
  6. DILUTOL (TORASEMIDE) [Suspect]
     Active Substance: TORSEMIDE
     Indication: CARDIAC FAILURE
     Dosage: 5 MG, 1X/DAY
     Route: 048
     Dates: start: 20130812, end: 20141210
  7. ANEUROL [Concomitant]
  8. CLOPIDOGREL [Concomitant]
     Active Substance: CLOPIDOGREL BISULFATE
     Dosage: 75 MG, 1X/DAY
  9. PANTOPRAZOLE [Concomitant]
     Active Substance: PANTOPRAZOLE SODIUM
     Dosage: 40 MG, 1X/DAY
  10. ATORVASTATIN [Concomitant]
     Active Substance: ATORVASTATIN
     Dosage: 40 MG, 1X/DAY

REACTIONS (2)
  - Dehydration [Recovering/Resolving]
  - Hyponatraemia [Recovering/Resolving]

NARRATIVE: CASE EVENT DATE: 20141203
